FAERS Safety Report 16014792 (Version 1)
Quarter: 2019Q1

REPORT INFORMATION
  Report Type: Spontaneous
  Country: JP (occurrence: JP)
  Receive Date: 20190227
  Receipt Date: 20190227
  Transmission Date: 20190418
  Serious: Yes (Life-Threatening)
  Sender: FDA-Public Use
  Company Number: PHJP2019JP001787

PATIENT
  Age: 81 Year
  Sex: Female

DRUGS (1)
  1. EXELON PATCH [Suspect]
     Active Substance: RIVASTIGMINE
     Indication: DEMENTIA ALZHEIMER^S TYPE
     Dosage: 1.9 MG, QD (PATCH 2.5 CM2)
     Route: 062
     Dates: end: 20190222

REACTIONS (1)
  - Speech disorder [Unknown]

NARRATIVE: CASE EVENT DATE: 201902
